FAERS Safety Report 23263213 (Version 1)
Quarter: 2023Q4

REPORT INFORMATION
  Report Type: Spontaneous
  Country: US (occurrence: None)
  Receive Date: 20231204
  Receipt Date: 20231204
  Transmission Date: 20240110
  Serious: Yes (Other)
  Sender: FDA-Public Use
  Company Number: None

PATIENT
  Age: 34 Year
  Sex: Female

DRUGS (1)
  1. RIBOFLAVIN [Suspect]
     Active Substance: RIBOFLAVIN
     Indication: Supplementation therapy
     Dosage: FREQUENCY : AS NEEDED;?
     Route: 041
     Dates: start: 20231110, end: 20231110

REACTIONS (5)
  - Hypersensitivity [None]
  - Infusion related reaction [None]
  - Eye swelling [None]
  - Ear pruritus [None]
  - Throat irritation [None]

NARRATIVE: CASE EVENT DATE: 20231110
